FAERS Safety Report 12892061 (Version 1)
Quarter: 2016Q4

REPORT INFORMATION
  Report Type: Report from Study
  Country: MX (occurrence: MX)
  Receive Date: 20161028
  Receipt Date: 20161028
  Transmission Date: 20170207
  Serious: Yes (Other)
  Sender: FDA-Public Use
  Company Number: MX-ORION CORPORATION ORION PHARMA-ENTC2016-0620

PATIENT
  Sex: Female
  Weight: 62 kg

DRUGS (7)
  1. CARBIDOPA AND LEVODOPA [Concomitant]
     Active Substance: CARBIDOPA\LEVODOPA
     Route: 065
  2. ASPRIN [Concomitant]
     Active Substance: ASPIRIN
     Indication: INFARCTION
     Route: 065
  3. STALEVO [Suspect]
     Active Substance: CARBIDOPA\ENTACAPONE\LEVODOPA
     Indication: CEREBRAL DISORDER
     Dosage: STRENGTH: 75/18.75/200 MG
     Route: 065
  4. PREDNISONE. [Concomitant]
     Active Substance: PREDNISONE
     Route: 065
  5. PK-MERZ [Concomitant]
     Active Substance: AMANTADINE
     Route: 065
  6. STALEVO [Suspect]
     Active Substance: CARBIDOPA\ENTACAPONE\LEVODOPA
     Indication: PARKINSON^S DISEASE
     Dosage: HIGHER DOSE
     Route: 048
  7. EUTIROX [Concomitant]
     Active Substance: LEVOTHYROXINE SODIUM
     Route: 065

REACTIONS (6)
  - Multiple drug therapy [Unknown]
  - Psychotic disorder [Not Recovered/Not Resolved]
  - Fall [Recovered/Resolved]
  - Hallucination, visual [Not Recovered/Not Resolved]
  - Hip fracture [Recovered/Resolved]
  - Product use issue [Not Recovered/Not Resolved]
